FAERS Safety Report 13011628 (Version 1)
Quarter: 2016Q4

REPORT INFORMATION
  Report Type: Spontaneous
  Country: US (occurrence: US)
  Receive Date: 20161209
  Receipt Date: 20161209
  Transmission Date: 20170207
  Serious: No
  Sender: FDA-Public Use
  Company Number: US-JNJFOC-20161110028

PATIENT
  Age: 63 Year
  Sex: Female
  Weight: 201 kg

DRUGS (2)
  1. IMODIUM AD [Suspect]
     Active Substance: LOPERAMIDE HYDROCHLORIDE
     Indication: DIARRHOEA
     Dosage: 1-2 CAPLETS ONCE DAILY
     Route: 048
     Dates: start: 20161108
  2. IMODIUM AD [Suspect]
     Active Substance: LOPERAMIDE HYDROCHLORIDE
     Route: 048

REACTIONS (4)
  - Foreign body [Unknown]
  - Product difficult to swallow [Unknown]
  - Product packaging issue [Unknown]
  - Product closure removal difficult [None]

NARRATIVE: CASE EVENT DATE: 20161108
